FAERS Safety Report 23578473 (Version 1)
Quarter: 2024Q1

REPORT INFORMATION
  Report Type: Report from Study
  Country: TW (occurrence: TW)
  Receive Date: 20240229
  Receipt Date: 20240229
  Transmission Date: 20240410
  Serious: Yes (Hospitalization)
  Sender: FDA-Public Use
  Company Number: TW-ABBVIE-5652484

PATIENT
  Age: 75 Year
  Sex: Male

DRUGS (5)
  1. SKYRIZI [Suspect]
     Active Substance: RISANKIZUMAB-RZAA
     Indication: Psoriasis
     Route: 058
     Dates: start: 20221129
  2. ACETAMINOPHEN [Concomitant]
     Active Substance: ACETAMINOPHEN
     Indication: Calculus bladder
     Route: 048
     Dates: start: 20231004, end: 20231005
  3. CYPROHEPTADINE [Concomitant]
     Active Substance: CYPROHEPTADINE
     Indication: Insomnia
     Route: 048
     Dates: start: 20231003, end: 20231003
  4. DUTASTERIDE EG [Concomitant]
     Indication: Benign prostatic hyperplasia
     Route: 048
     Dates: start: 20231004, end: 20231005
  5. CEFAZOLIN [Concomitant]
     Active Substance: CEFAZOLIN
     Indication: Calculus bladder
     Route: 048
     Dates: start: 20231004, end: 20231005

REACTIONS (4)
  - Calculus bladder [Recovered/Resolved]
  - Haematuria [Unknown]
  - Pyuria [Unknown]
  - Prostatomegaly [Unknown]

NARRATIVE: CASE EVENT DATE: 20231001
